FAERS Safety Report 6434865-9 (Version None)
Quarter: 2009Q4

REPORT INFORMATION
  Report Type: 
  Country: None (occurrence: None)
  Receive Date: 20091110
  Receipt Date: 20091103
  Transmission Date: 20100525
  Serious: Yes (Other)
  Sender: FDA-Public Use
  Company Number: US-BAYER-200937367GPV

PATIENT
  Age: 53 Year
  Sex: Female

DRUGS (3)
  1. PHENYTOIN [Suspect]
     Indication: PROPHYLAXIS
  2. CEPHALEXIN [Suspect]
     Indication: LUNG INFECTION
  3. DOCUSATE [Suspect]
     Indication: PROPHYLAXIS

REACTIONS (4)
  - ALVEOLITIS ALLERGIC [None]
  - DYSPNOEA [None]
  - PRODUCTIVE COUGH [None]
  - PYREXIA [None]
